FAERS Safety Report 4791229-1 (Version None)
Quarter: 2005Q4

REPORT INFORMATION
  Report Type: 
  Country: None (occurrence: None)
  Receive Date: 20051007
  Receipt Date: 20050930
  Transmission Date: 20060501
  Serious: Yes (Hospitalization)
  Sender: FDA-Public Use
  Company Number: JP-BOEHRINGER INGELHEIM PHARMACEUTICALS, INC.-2005-BP-17780YA

PATIENT
  Age: 74 Year
  Sex: Male

DRUGS (6)
  1. HARNAL [Suspect]
     Route: 048
  2. WARFARIN [Suspect]
     Route: 048
  3. PARIET [Suspect]
     Route: 048
  4. DILTIAZEM HYDROCHLORIDE [Concomitant]
     Route: 048
  5. RILMAZAFONE [Concomitant]
     Route: 048
  6. PHENYTOIN [Concomitant]
     Route: 048

REACTIONS (2)
  - HAEMORRHAGE SUBCUTANEOUS [None]
  - INTERNATIONAL NORMALISED RATIO INCREASED [None]
